FAERS Safety Report 8158192-7 (Version None)
Quarter: 2012Q1

REPORT INFORMATION
  Report Type: 
  Country: None (occurrence: None)
  Receive Date: 20120222
  Receipt Date: 20120209
  Transmission Date: 20120608
  Serious: Yes (Death)
  Sender: FDA-Public Use
  Company Number: JP-MYLANLABS-2012S1003119

PATIENT
  Sex: Male

DRUGS (4)
  1. CISPLATIN [Suspect]
     Indication: GERM CELL CANCER
     Dosage: CISPLATIN 20 MG/M2 AND ETOPOSIDE FOR 5 CONSECUTIVE DAYS
     Route: 065
  2. CISPLATIN [Suspect]
     Dosage: DOSE REDUCED BY 75% FOR SECOND COURSE DUE TO BONE MARROW SUPPRESSION
     Route: 065
  3. ETOPOSIDE [Suspect]
     Dosage: DOSE REDUCED BY 75% FOR SECOND COURSE DUE TO BONE MARROW SUPPRESSION
     Route: 065
  4. ETOPOSIDE [Suspect]
     Indication: GERM CELL CANCER
     Dosage: 60MG/M2 FOR 5 CONSECUTIVE DAYS
     Route: 065

REACTIONS (2)
  - BONE MARROW FAILURE [None]
  - GLIOBLASTOMA [None]
